FAERS Safety Report 13833842 (Version 1)
Quarter: 2017Q3

REPORT INFORMATION
  Report Type: Spontaneous
  Country: US (occurrence: US)
  Receive Date: 20170804
  Receipt Date: 20170804
  Transmission Date: 20171127
  Serious: Yes (Hospitalization)
  Sender: FDA-Public Use
  Company Number: US-ROCHE-1885098

PATIENT
  Age: 45 Year
  Sex: Male

DRUGS (3)
  1. ISONIAZID. [Concomitant]
     Active Substance: ISONIAZID
     Indication: TUBERCULOSIS
     Route: 048
  2. HEPARIN [Concomitant]
     Active Substance: HEPARIN SODIUM
     Dosage: 6000 UNITS
     Route: 042
  3. VALIUM [Suspect]
     Active Substance: DIAZEPAM
     Indication: MYOCARDIAL INFARCTION
     Route: 048

REACTIONS (1)
  - Hepatitis [Recovering/Resolving]
